FAERS Safety Report 7557591-1 (Version None)
Quarter: 2011Q2

REPORT INFORMATION
  Report Type: 
  Country: None (occurrence: None)
  Receive Date: 20110620
  Receipt Date: 20110608
  Transmission Date: 20111010
  Serious: Yes (Death)
  Sender: FDA-Public Use
  Company Number: TR-ACTELION-A-CH2011-50048

PATIENT
  Sex: Female
  Weight: 7.5 kg

DRUGS (4)
  1. TRACLEER [Suspect]
     Indication: PULMONARY ARTERIAL HYPERTENSION
     Dosage: 31 MG, BID
     Route: 048
     Dates: start: 20100924
  2. ENALAPRIL MALEATE [Concomitant]
     Dosage: UNK
     Dates: start: 20100619
  3. LASIX [Concomitant]
     Dosage: UNK
     Dates: start: 20100619
  4. TRACLEER [Suspect]
     Dosage: 15 MG, UNK
     Route: 048
     Dates: start: 20100824, end: 20100923

REACTIONS (1)
  - DEATH [None]
